FAERS Safety Report 9147849 (Version 7)
Quarter: 2013Q4

REPORT INFORMATION
  Report Type: Spontaneous
  Country: FR (occurrence: FR)
  Receive Date: 20130307
  Receipt Date: 20131219
  Transmission Date: 20140711
  Serious: Yes (Hospitalization, Other)
  Sender: FDA-Public Use
  Company Number: FR-GILEAD-2013-0071127

PATIENT
  Age: 59 Year
  Sex: Male

DRUGS (8)
  1. TRUVADA [Suspect]
     Indication: HIV INFECTION
     Dosage: 1 DF, QD
     Route: 048
     Dates: start: 20090207
  2. RAMIPRIL BIOGARAN [Suspect]
     Dosage: 5 MG, QD
     Route: 048
     Dates: start: 20120802, end: 20130129
  3. BACTRIM [Suspect]
     Dosage: UNK
     Route: 048
     Dates: start: 20110108
  4. BACTRIM [Suspect]
     Dosage: UNK
     Dates: start: 19940401, end: 20020907
  5. REYATAZ [Suspect]
     Indication: HIV INFECTION
     Dosage: 200 MG, BID
     Route: 048
     Dates: start: 20090207
  6. LOCERYL [Concomitant]
  7. NORVIR [Suspect]
     Indication: HIV INFECTION
     Dosage: UNK
     Route: 048
     Dates: start: 20130118
  8. RAMIPRIL [Suspect]
     Indication: HYPERTENSION
     Dosage: UNK
     Dates: start: 20121027, end: 20130209

REACTIONS (4)
  - Nephrolithiasis [Recovered/Resolved]
  - Renal tubular necrosis [Recovering/Resolving]
  - Renal failure acute [Recovering/Resolving]
  - Tubulointerstitial nephritis [Recovering/Resolving]
